FAERS Safety Report 25381531 (Version 2)
Quarter: 2025Q2

REPORT INFORMATION
  Report Type: Report from Study
  Country: US (occurrence: US)
  Receive Date: 20250530
  Receipt Date: 20250606
  Transmission Date: 20250717
  Serious: Yes (Hospitalization)
  Sender: ALEXION PHARMACEUTICALS
  Company Number: US-AstraZeneca-CH-00879913A

PATIENT
  Age: 61 Year
  Weight: 55 kg

DRUGS (1)
  1. SODIUM ZIRCONIUM CYCLOSILICATE [Suspect]
     Active Substance: SODIUM ZIRCONIUM CYCLOSILICATE

REACTIONS (4)
  - Hyperkalaemia [Unknown]
  - Product use issue [Unknown]
  - Blood parathyroid hormone increased [Unknown]
  - Inability to afford medication [Unknown]
